FAERS Safety Report 7088982-3 (Version None)
Quarter: 2010Q4

REPORT INFORMATION
  Report Type: 
  Country: None (occurrence: None)
  Receive Date: 20101029
  Receipt Date: 20101019
  Transmission Date: 20110411
  Serious: Yes (Other)
  Sender: FDA-Public Use
  Company Number: 2010MA003800

PATIENT
  Age: 47 Year
  Sex: Male

DRUGS (2)
  1. FEVERALL [Suspect]
     Indication: PAIN
     Dosage: 1 GM; IV
     Route: 042
     Dates: start: 20090604
  2. MORPHINE [Concomitant]

REACTIONS (1)
  - HYPOTENSION [None]
